FAERS Safety Report 17464122 (Version 1)
Quarter: 2020Q1

REPORT INFORMATION
  Report Type: Spontaneous
  Country: US (occurrence: US)
  Receive Date: 20200226
  Receipt Date: 20200226
  Transmission Date: 20200409
  Serious: Yes (Hospitalization)
  Sender: FDA-Public Use
  Company Number: US-FRESENIUS KABI-FK202001822

PATIENT
  Age: 65 Year
  Sex: Female

DRUGS (1)
  1. HYDROMORPHONE INJECTION [Suspect]
     Active Substance: HYDROMORPHONE HYDROCHLORIDE
     Indication: PRODUCT USED FOR UNKNOWN INDICATION
     Route: 065

REACTIONS (5)
  - Dysphagia [Recovering/Resolving]
  - Pneumonia aspiration [Recovering/Resolving]
  - Gastrooesophageal reflux disease [Recovering/Resolving]
  - Weight decreased [Recovering/Resolving]
  - Oesophageal obstruction [Recovering/Resolving]
